FAERS Safety Report 6371008-4 (Version None)
Quarter: 2009Q3

REPORT INFORMATION
  Report Type: 
  Country: None (occurrence: None)
  Receive Date: 20090923
  Receipt Date: 20090911
  Transmission Date: 20100115
  Serious: Yes (Hospitalization)
  Sender: FDA-Public Use
  Company Number: CH-PFIZER INC-2009267289

PATIENT
  Age: 62 Year

DRUGS (13)
  1. VFEND [Suspect]
     Indication: CANDIDIASIS
     Dosage: 200 MG, 2X/DAY
     Route: 048
     Dates: start: 20081219, end: 20090127
  2. VFEND [Suspect]
     Dosage: 200 MG, 4X/DAY
     Route: 048
     Dates: start: 20090128, end: 20090303
  3. VIBRAMYCIN [Suspect]
     Indication: Q FEVER
     Dosage: 200 MG, 1X/DAY
     Dates: start: 20081212, end: 20090303
  4. CIPROFLOXACIN HCL [Suspect]
     Indication: Q FEVER
     Dosage: 750 MG, 2X/DAY
     Route: 048
     Dates: start: 20081212, end: 20090303
  5. IBUPROFEN [Suspect]
     Indication: BACK PAIN
     Dosage: 400 MG, AS NEEDED
     Route: 048
     Dates: end: 20090303
  6. ASPIRIN [Concomitant]
     Dosage: 100 MG, 1X/DAY
     Route: 048
  7. ACETAMINOPHEN [Concomitant]
     Dosage: 1 G, 4X/DAY
     Route: 048
  8. BISOPROLOL FUMARATE [Concomitant]
     Dosage: 10 MG, 1X/DAY
     Route: 048
  9. ZESTRIL [Concomitant]
     Dosage: 5 MG, 1X/DAY
     Route: 048
  10. AMLODIPINE [Concomitant]
     Dosage: 5 MG, 1X/DAY
     Route: 048
  11. PRAVASTATIN SODIUM [Concomitant]
     Dosage: 40 MG, 1X/DAY
     Route: 048
  12. PANTOPRAZOLE SODIUM [Concomitant]
     Dosage: 20 MG, 1X/DAY
     Route: 048
  13. PARAGOL [Concomitant]
     Dosage: 15 MG, 2X/DAY
     Route: 048

REACTIONS (1)
  - PANCYTOPENIA [None]
